FAERS Safety Report 6549595-2 (Version None)
Quarter: 2010Q1

REPORT INFORMATION
  Report Type: 
  Country: None (occurrence: None)
  Receive Date: 20100125
  Receipt Date: 20100115
  Transmission Date: 20100710
  Serious: Yes (Other)
  Sender: FDA-Public Use
  Company Number: JP-ABBOTT-09P-087-0608823-00

PATIENT
  Sex: Female

DRUGS (4)
  1. FENOFIBRATE [Suspect]
     Indication: HYPERLIPIDAEMIA
     Dosage: 200MG DAILY
     Route: 048
     Dates: start: 20090515, end: 20090518
  2. FENOFIBRATE [Suspect]
     Dosage: 100MG DAILY
     Route: 048
     Dates: start: 20090518
  3. FENOFIBRATE [Suspect]
     Dosage: 200MG DAILY
     Dates: start: 20090915, end: 20090917
  4. FENOFIBRATE [Suspect]
     Dosage: 100MG DAILY
     Dates: start: 20090918

REACTIONS (1)
  - MELAENA [None]
